FAERS Safety Report 16230781 (Version 2)
Quarter: 2019Q2

REPORT INFORMATION
  Report Type: Spontaneous
  Country: NL (occurrence: NL)
  Receive Date: 20190423
  Receipt Date: 20190510
  Transmission Date: 20190711
  Serious: Yes (Other)
  Sender: FDA-Public Use
  Company Number: NL-PFIZER INC-2019165678

PATIENT
  Age: 4 Year
  Sex: Male

DRUGS (1)
  1. REFACTO AF [Suspect]
     Active Substance: ANTIHEMOPHILIC FACTOR, HUMAN RECOMBINANT RESIDUES 743-1636 DELETED
     Indication: FACTOR VIII DEFICIENCY
     Dosage: 1000 IU, 2X/WEEK
     Route: 058

REACTIONS (3)
  - Peripheral swelling [Recovering/Resolving]
  - Haemorrhage [Unknown]
  - Therapeutic product effect incomplete [Unknown]

NARRATIVE: CASE EVENT DATE: 20190414
